FAERS Safety Report 8833232 (Version 1)
Quarter: 2012Q4

REPORT INFORMATION
  Report Type: 
  Country: BR (occurrence: BR)
  Receive Date: 20121010
  Receipt Date: 20121010
  Transmission Date: 20130627
  Serious: Yes (Hospitalization)
  Sender: FDA-Public Use
  Company Number: PHHY2012BR087964

PATIENT
  Sex: Male

DRUGS (2)
  1. FORASEQ [Suspect]
     Indication: EMPHYSEMA
     Dosage: UNK UKN, BID
  2. BAMIFIX [Concomitant]
     Indication: EMPHYSEMA
     Dosage: UNK UKN, BID

REACTIONS (3)
  - Dyspnoea [Unknown]
  - Emphysema [Unknown]
  - Condition aggravated [Unknown]
